FAERS Safety Report 10008594 (Version 1)
Quarter: 2014Q1

REPORT INFORMATION
  Report Type: Spontaneous
  Country: IT (occurrence: IT)
  Receive Date: 20140313
  Receipt Date: 20140313
  Transmission Date: 20141002
  Serious: Yes (Death)
  Sender: FDA-Public Use
  Company Number: IT-GILEAD-2014-0096106

PATIENT
  Age: 50 Year
  Sex: 0

DRUGS (3)
  1. TRUVADA [Suspect]
     Indication: HIV INFECTION
     Route: 065
  2. ATAZANAVIR [Concomitant]
     Indication: HIV INFECTION
  3. SORAFENIB [Concomitant]
     Indication: HEPATOCELLULAR CARCINOMA
     Dosage: 400 MG, QD
     Route: 065

REACTIONS (4)
  - Drug interaction [Fatal]
  - Hepatotoxicity [Fatal]
  - Bleeding varicose vein [Fatal]
  - Fatigue [Unknown]
